FAERS Safety Report 6599061-3 (Version None)
Quarter: 2010Q1

REPORT INFORMATION
  Report Type: 
  Country: None (occurrence: None)
  Receive Date: 20100224
  Receipt Date: 20090811
  Transmission Date: 20100710
  Serious: No
  Sender: FDA-Public Use
  Company Number: US-BRISTOL-MYERS SQUIBB COMPANY-14727598

PATIENT
  Age: 56 Year
  Sex: Female

DRUGS (2)
  1. METFORMIN HCL [Suspect]
     Indication: DIABETES MELLITUS
     Route: 048
     Dates: start: 20081001, end: 20090301
  2. ACTOPLUS MET [Suspect]
     Indication: DIABETES MELLITUS
     Dates: start: 20081001

REACTIONS (2)
  - RASH [None]
  - SWELLING [None]
